FAERS Safety Report 10017506 (Version 1)
Quarter: 2014Q1

REPORT INFORMATION
  Report Type: Spontaneous
  Country: US (occurrence: US)
  Receive Date: 20140318
  Receipt Date: 20140318
  Transmission Date: 20141002
  Serious: No
  Sender: FDA-Public Use
  Company Number: US-BAYER-2014-039455

PATIENT
  Age: 31 Year
  Sex: Female
  Weight: 92.97 kg

DRUGS (1)
  1. MIDOL EXTENDED RELIEF CAPLET [Suspect]
     Indication: DYSMENORRHOEA
     Dosage: 1 DF, PRN
     Route: 048
     Dates: start: 20140301

REACTIONS (1)
  - Dysgeusia [Recovered/Resolved]
